FAERS Safety Report 7204523-1 (Version None)
Quarter: 2010Q4

REPORT INFORMATION
  Report Type: 
  Country: None (occurrence: None)
  Receive Date: 20101230
  Receipt Date: 20101216
  Transmission Date: 20110411
  Serious: Yes (Hospitalization)
  Sender: FDA-Public Use
  Company Number: PHHY2010FR86085

PATIENT
  Age: 60 Year
  Sex: Female

DRUGS (8)
  1. TAREG [Suspect]
     Indication: HYPERTENSION
     Dosage: 40 MG DAILY
  2. RAPAMUNE [Suspect]
     Indication: RENAL TRANSPLANT
     Dosage: UNK
     Dates: start: 20040316, end: 20101112
  3. CELLCEPT [Suspect]
     Indication: RENAL TRANSPLANT
     Dosage: 500 MG, 3 DF DAILY
     Dates: start: 20040322
  4. MEDROL [Suspect]
     Dosage: 2 MG DAILY
  5. SPECIAFOLDINE [Suspect]
     Dosage: 5 MG DAILY
  6. TENORMIN [Suspect]
     Indication: HYPERTENSION
     Dosage: 25 MG DAILY
  7. VASTEN [Suspect]
     Indication: HYPERCHOLESTEROLAEMIA
     Dosage: 10 MG DAILY
  8. DEROXAT [Suspect]
     Dosage: 20 MG DAILY

REACTIONS (5)
  - ASTHENIA [None]
  - GENERAL PHYSICAL HEALTH DETERIORATION [None]
  - INTERSTITIAL LUNG DISEASE [None]
  - PYREXIA [None]
  - WEIGHT DECREASED [None]
